FAERS Safety Report 17666928 (Version 2)
Quarter: 2020Q2

REPORT INFORMATION
  Report Type: Spontaneous
  Country: US (occurrence: US)
  Receive Date: 20200414
  Receipt Date: 20200422
  Transmission Date: 20200713
  Serious: Yes (Hospitalization, Other)
  Sender: FDA-Public Use
  Company Number: US-PFIZER INC-2018229323

PATIENT
  Age: 62 Year
  Sex: Female
  Weight: 73.03 kg

DRUGS (8)
  1. MORPHINE [Concomitant]
     Active Substance: MORPHINE
     Indication: PAIN
     Dosage: UNK
  2. CELEBREX [Suspect]
     Active Substance: CELECOXIB
     Indication: PAIN
  3. CELEBREX [Suspect]
     Active Substance: CELECOXIB
     Indication: PULMONARY FIBROSIS
  4. CELEBREX [Suspect]
     Active Substance: CELECOXIB
     Indication: INTERVERTEBRAL DISC DISORDER
     Dosage: 200 MG, 1X/DAY [ONE CAPSULE DAILY BY MOUTH]
     Route: 048
     Dates: start: 2012
  5. CELEBREX [Suspect]
     Active Substance: CELECOXIB
     Indication: ARTHRALGIA
  6. CELEBREX [Suspect]
     Active Substance: CELECOXIB
     Indication: INFLAMMATION
  7. CELEBREX [Suspect]
     Active Substance: CELECOXIB
     Indication: EMPHYSEMA
  8. CELEBREX [Suspect]
     Active Substance: CELECOXIB
     Indication: CHRONIC OBSTRUCTIVE PULMONARY DISEASE

REACTIONS (9)
  - Off label use [Unknown]
  - Confusional state [Unknown]
  - Product use in unapproved indication [Unknown]
  - Dyspnoea [Unknown]
  - Loss of consciousness [Unknown]
  - Weight increased [Unknown]
  - Sepsis [Unknown]
  - Poisoning [Unknown]
  - Thinking abnormal [Recovered/Resolved]

NARRATIVE: CASE EVENT DATE: 20190429
